FAERS Safety Report 8431964-7 (Version None)
Quarter: 2012Q2

REPORT INFORMATION
  Report Type: 
  Country: None (occurrence: None)
  Receive Date: 20120613
  Receipt Date: 20110928
  Transmission Date: 20120825
  Serious: No
  Sender: FDA-Public Use
  Company Number: US-ASTRAZENECA-2011SE32385

PATIENT
  Age: 77 Year
  Sex: Female

DRUGS (1)
  1. RHINOCORT [Suspect]
     Route: 045

REACTIONS (8)
  - NASAL CONGESTION [None]
  - DYSPNOEA [None]
  - MALAISE [None]
  - HEADACHE [None]
  - MULTIPLE ALLERGIES [None]
  - DRUG DOSE OMISSION [None]
  - UPPER-AIRWAY COUGH SYNDROME [None]
  - NASAL DISCOMFORT [None]
